FAERS Safety Report 8597032-9 (Version None)
Quarter: 2012Q3

REPORT INFORMATION
  Report Type: 
  Country: None (occurrence: None)
  Receive Date: 20120816
  Receipt Date: 20120806
  Transmission Date: 20120928
  Serious: Yes (Death, Congenital Anomaly, Other)
  Sender: FDA-Public Use
  Company Number: FR-AMGEN-FRASP2011024860

PATIENT

DRUGS (2)
  1. ENBREL [Suspect]
     Indication: RHEUMATOID ARTHRITIS
     Dosage: UNK
     Route: 064
     Dates: start: 20050101, end: 20091001
  2. ENBREL [Suspect]
     Dosage: 50 MG, WEEKLY
     Route: 064
     Dates: end: 20091101

REACTIONS (6)
  - BONE DEFORMITY [None]
  - CLEFT LIP AND PALATE [None]
  - CYTOMEGALOVIRUS INFECTION [None]
  - FOETAL GROWTH RESTRICTION [None]
  - RETROGNATHIA [None]
  - MATERNAL EXPOSURE TIMING UNSPECIFIED [None]
